FAERS Safety Report 5368466-0 (Version None)
Quarter: 2007Q2

REPORT INFORMATION
  Report Type: 
  Country: None (occurrence: None)
  Receive Date: 20070625
  Receipt Date: 20070611
  Transmission Date: 20071010
  Serious: Yes (Hospitalization)
  Sender: FDA-Public Use
  Company Number: FR-ELI_LILLY_AND_COMPANY-FR200705006395

PATIENT
  Age: 71 Year
  Sex: Female
  Weight: 40 kg

DRUGS (6)
  1. FORTEO [Suspect]
     Indication: OSTEOPOROSIS
     Dosage: 20 UG, DAILY (1/D)
     Route: 058
     Dates: start: 20061025
  2. IFOSFAMIDE [Concomitant]
  3. ADRIAMYCIN PFS [Concomitant]
  4. CISPLATIN [Concomitant]
  5. CALCIDOSE VITAMINE D [Concomitant]
     Dosage: 2 D/F, DAILY (1/D)
     Route: 048
     Dates: start: 20060701
  6. NEURONTIN [Concomitant]
     Dosage: 900 MG, DAILY (1/D)
     Route: 048
     Dates: start: 20060701

REACTIONS (1)
  - INTESTINAL OBSTRUCTION [None]
